FAERS Safety Report 6468546-2 (Version None)
Quarter: 2009Q4

REPORT INFORMATION
  Report Type: 
  Country: None (occurrence: None)
  Receive Date: 20091203
  Receipt Date: 20091201
  Transmission Date: 20100525
  Serious: No
  Sender: FDA-Public Use
  Company Number: US-B.I. PHARMACEUTICALS,INC./RIDGEFIELD-2009-BP-13122BP

PATIENT
  Sex: Female

DRUGS (6)
  1. SPIRIVA [Suspect]
     Indication: CHRONIC OBSTRUCTIVE PULMONARY DISEASE
     Dosage: 18 MCG
     Route: 055
     Dates: start: 20091026
  2. NEXIUM [Concomitant]
     Indication: GASTROOESOPHAGEAL REFLUX DISEASE
  3. LIPITOR [Concomitant]
     Indication: BLOOD CHOLESTEROL INCREASED
  4. TOPROL-XL [Concomitant]
     Indication: MYOCARDIAL INFARCTION
  5. VITAMINS [Concomitant]
     Indication: PROPHYLAXIS
  6. TEMAZEPAM [Concomitant]
     Indication: INSOMNIA

REACTIONS (4)
  - EYE PAIN [None]
  - LACRIMATION INCREASED [None]
  - NASAL DISCOMFORT [None]
  - OCULAR HYPERAEMIA [None]
